FAERS Safety Report 21560390 (Version 4)
Quarter: 2022Q4

REPORT INFORMATION
  Report Type: Report from Study
  Country: US (occurrence: US)
  Receive Date: 20221107
  Receipt Date: 20221223
  Transmission Date: 20230112
  Serious: Yes (Other)
  Sender: FDA-Public Use
  Company Number: US-002147023-NVSC2022US248365

PATIENT
  Age: 74 Year
  Sex: Female
  Weight: 55.3 kg

DRUGS (7)
  1. PIQRAY [Suspect]
     Active Substance: ALPELISIB
     Indication: Breast cancer metastatic
     Dosage: 2 DOSAGE FORM, QD (300 MG/DAY) (150 MG X 2)(WITH A MEAL, TAKE ON DAYS 1-28 OF EACH 28 DAY CYCLE)
     Route: 048
     Dates: start: 20221013
  2. NORVASC [Concomitant]
     Active Substance: AMLODIPINE BESYLATE
     Indication: Product used for unknown indication
     Dosage: 10 MG, QD (TAKE 1 TABLET BY MOUTH ONCE  DAILY)
     Route: 048
  3. CHOLECALCIFEROL [Concomitant]
     Active Substance: CHOLECALCIFEROL
     Indication: Product used for unknown indication
     Dosage: 2 DOSAGE FORM, QD (TAKE 2 CAPSULES BY MOUTH ONCE DAILY)
     Route: 048
  4. CYANOCOBALAMIN [Concomitant]
     Active Substance: CYANOCOBALAMIN
     Indication: Product used for unknown indication
     Dosage: 1 DOSAGE FORM, QD (TAKE 1 TABLET)
     Route: 048
  5. ZINC [Concomitant]
     Active Substance: ZINC
     Indication: Product used for unknown indication
     Dosage: 1 DOSAGE FORM, QD
     Route: 048
  6. SELENIUM [Concomitant]
     Active Substance: SELENIUM
     Indication: Product used for unknown indication
     Dosage: UNK, QD
     Route: 048
  7. VITAMIN C [Concomitant]
     Active Substance: ASCORBIC ACID
     Indication: Product used for unknown indication
     Dosage: UNK
     Route: 065

REACTIONS (14)
  - Loss of consciousness [Recovered/Resolved]
  - Blood glucose increased [Recovering/Resolving]
  - Syncope [Unknown]
  - Asthenia [Recovering/Resolving]
  - Eye pain [Unknown]
  - Diarrhoea [Recovered/Resolved]
  - Ocular hyperaemia [Unknown]
  - Oral pain [Unknown]
  - Pain in extremity [Unknown]
  - Rash [Recovering/Resolving]
  - Weight decreased [Unknown]
  - Erythema [Unknown]
  - Dizziness [Unknown]
  - Nausea [Unknown]

NARRATIVE: CASE EVENT DATE: 20221024
